FAERS Safety Report 19661142 (Version 1)
Quarter: 2021Q3

REPORT INFORMATION
  Report Type: Spontaneous
  Country: US (occurrence: US)
  Receive Date: 20210805
  Receipt Date: 20210805
  Transmission Date: 20211014
  Serious: No
  Sender: FDA-Public Use
  Company Number: US-PFIZER INC-2019506211

PATIENT
  Age: 68 Year
  Sex: Female

DRUGS (1)
  1. RELPAX [Suspect]
     Active Substance: ELETRIPTAN HYDROBROMIDE
     Indication: MIGRAINE WITHOUT AURA
     Dosage: 40 MG, 1X/DAY (1 PO HS (AT BEDTIME) MAY REPEAT IN 2 HOURSNOT TO EXCEED MORE THAN 2 PILLS IN 24 HOURS
     Route: 048

REACTIONS (3)
  - Off label use [Unknown]
  - Nervousness [Unknown]
  - Product use issue [Unknown]
